FAERS Safety Report 22291351 (Version 1)
Quarter: 2023Q2

REPORT INFORMATION
  Report Type: Spontaneous
  Country: US (occurrence: US)
  Receive Date: 20230506
  Receipt Date: 20230506
  Transmission Date: 20230722
  Serious: Yes (Other)
  Sender: FDA-Public Use
  Company Number: US-TEVA-2023-US-2882970

PATIENT
  Age: 43 Year
  Sex: Female

DRUGS (2)
  1. METOPROLOL SUCCINATE [Suspect]
     Active Substance: METOPROLOL SUCCINATE
     Indication: Supraventricular tachycardia
     Dosage: 75 MILLIGRAM DAILY; TAKING BOTH 50 MG AND 25 MG TABLETS FOR A TOTAL DOSE OF 75 MG DAILY
     Route: 065
     Dates: start: 202304
  2. METOPROLOL SUCCINATE [Suspect]
     Active Substance: METOPROLOL SUCCINATE
     Indication: Product used for unknown indication
     Dosage: 75 MILLIGRAM DAILY; TAKING BOTH 50 MG AND 25 MG TABLETS FOR A TOTAL DOSE OF 75 MG DAILY
     Route: 065

REACTIONS (2)
  - Blindness transient [Recovered/Resolved]
  - Miosis [Recovered/Resolved]

NARRATIVE: CASE EVENT DATE: 20230401
